FAERS Safety Report 4432033-3 (Version None)
Quarter: 2004Q3

REPORT INFORMATION
  Report Type: 
  Country: None (occurrence: None)
  Receive Date: 20040818
  Receipt Date: 20040805
  Transmission Date: 20050211
  Serious: Yes (Other)
  Sender: FDA-Public Use
  Company Number: 2004047823

PATIENT
  Age: 72 Year
  Sex: Female
  Weight: 52.6173 kg

DRUGS (5)
  1. NEURONTIN [Suspect]
     Indication: PARTIAL SEIZURES
     Dosage: 200 MG (100 MG, 2 IN 1 D), ORAL
     Route: 048
     Dates: start: 20040201
  2. DILANTIN [Suspect]
     Indication: PARTIAL SEIZURES
     Dosage: ORAL
     Route: 048
     Dates: start: 20040203, end: 20040201
  3. CARBAMAZEPINE [Suspect]
     Indication: PARTIAL SEIZURES
     Dates: start: 20040201, end: 20040201
  4. PHENOBARBITAL TAB [Suspect]
     Indication: PARTIAL SEIZURES
     Dates: start: 20040201, end: 20040201
  5. VITAMINS (VITAMINS) [Concomitant]

REACTIONS (6)
  - BALANCE DISORDER [None]
  - BLOOD TRIGLYCERIDES INCREASED [None]
  - BODY TEMPERATURE INCREASED [None]
  - FLATULENCE [None]
  - RASH [None]
  - SIMPLE PARTIAL SEIZURES [None]
